FAERS Safety Report 8721197 (Version 2)
Quarter: 2013Q4

REPORT INFORMATION
  Report Type: Spontaneous
  Country: JP (occurrence: JP)
  Receive Date: 20120813
  Receipt Date: 20131031
  Transmission Date: 20140711
  Serious: Yes (Hospitalization)
  Sender: FDA-Public Use
  Company Number: JP-009507513-1208JPN001358

PATIENT
  Age: 86 Year
  Sex: Male

DRUGS (12)
  1. JANUVIA TABLETS 50MG [Suspect]
     Indication: DIABETES MELLITUS
     Dosage: UNK
     Route: 048
     Dates: start: 20120718, end: 201207
  2. JANUVIA TABLETS 50MG [Suspect]
     Indication: DIABETES MELLITUS
     Dosage: UNK
     Route: 048
     Dates: start: 20120801, end: 20120802
  3. BAYASPIRIN [Concomitant]
     Dosage: 100 MG, ONCE
     Route: 048
  4. PLAVIX [Concomitant]
     Dosage: 75 MG, ONCE
  5. MAIBASTAN [Concomitant]
     Dosage: 10 MG, ONCE
     Route: 048
  6. SODIUM FERROUS CITRATE [Concomitant]
     Dosage: 50 MG, UNK
     Route: 048
  7. LANSOPRAZOLE [Concomitant]
     Dosage: 30 MG, UNK
     Route: 048
  8. MAGMITT [Concomitant]
     Dosage: 500 MG, UNK
     Route: 048
  9. EDIROL [Concomitant]
     Dosage: 0.75 MG, UNK
     Route: 048
  10. TRAMADOL HYDROCHLORIDE [Concomitant]
     Route: 048
  11. METOCLOPRAMIDE [Concomitant]
     Route: 048
  12. ALLELOCK [Concomitant]
     Dosage: 10 MG, UNK
     Route: 048

REACTIONS (1)
  - Ileus [Recovered/Resolved]
